FAERS Safety Report 4717801-2 (Version None)
Quarter: 2005Q3

REPORT INFORMATION
  Report Type: 
  Country: None (occurrence: None)
  Receive Date: 20050715
  Receipt Date: 20050613
  Transmission Date: 20060218
  Serious: Yes (Death, Disabling)
  Sender: FDA-Public Use
  Company Number: 2004-00763

PATIENT
  Age: 77 Year
  Sex: Male
  Weight: 90.2 kg

DRUGS (15)
  1. INTEGRILIN [Suspect]
     Indication: CORONARY ANGIOPLASTY
     Dosage: SEE IMAGE
     Route: 042
     Dates: start: 20041103, end: 20041103
  2. INTEGRILIN [Suspect]
     Indication: CORONARY ANGIOPLASTY
     Dosage: SEE IMAGE
     Route: 042
     Dates: start: 20041103, end: 20041103
  3. . [Concomitant]
  4. HEPARIN [Suspect]
     Indication: CORONARY ANGIOPLASTY
     Dosage: 5000.00 UNK, INTRAVENOUS
     Route: 042
     Dates: start: 20041103
  5. PLAVIX [Suspect]
     Indication: CORONARY ANGIOPLASTY
     Dosage: 300 MG, ORAL
     Route: 048
     Dates: start: 20041103
  6. ASPIRIN [Concomitant]
  7. ALLOPURINOL [Concomitant]
  8. AVAPRO [Concomitant]
  9. NAMENDA [Concomitant]
  10. XANAX [Concomitant]
  11. REMINYL [Concomitant]
  12. LOPRESSOR [Concomitant]
  13. VITAMIN E [Concomitant]
  14. MULTIVITAMINS (ERGOCALCIFEROL, PANTHENOL, NICOTINAMIDE, RIBOFLAVIN, TH [Concomitant]
  15. VITAMIN C (ASCORBIC ACID) [Concomitant]

REACTIONS (1)
  - HAEMORRHAGE INTRACRANIAL [None]
